FAERS Safety Report 6788758-8 (Version None)
Quarter: 2010Q2

REPORT INFORMATION
  Report Type: 
  Country: None (occurrence: None)
  Receive Date: 20100623
  Receipt Date: 20080519
  Transmission Date: 20101027
  Serious: No
  Sender: FDA-Public Use
  Company Number: US-PFIZER INC-2008040169

PATIENT
  Sex: Male

DRUGS (5)
  1. XALATAN [Suspect]
     Indication: GLAUCOMA
     Dates: start: 20030101
  2. ZIAC [Concomitant]
     Indication: HYPERTENSION
  3. ZOCOR [Concomitant]
  4. ALLERGY MEDICATION [Concomitant]
     Indication: HYPERSENSITIVITY
  5. PRILOSEC [Concomitant]

REACTIONS (1)
  - EYE IRRITATION [None]
